FAERS Safety Report 10925618 (Version 1)
Quarter: 2015Q1

REPORT INFORMATION
  Report Type: Spontaneous
  Country: US (occurrence: None)
  Receive Date: 20150316
  Receipt Date: 20150316
  Transmission Date: 20150721
  Serious: Yes (Hospitalization)
  Sender: FDA-Public Use
  Company Number: None

PATIENT
  Age: 35 Year
  Sex: Male
  Weight: 85.2 kg

DRUGS (2)
  1. GENTAMICIN. [Suspect]
     Active Substance: GENTAMICIN
     Indication: ENDOCARDITIS BACTERIAL
     Route: 042
     Dates: start: 20140330, end: 20140403
  2. GENTAMICIN. [Suspect]
     Active Substance: GENTAMICIN
     Indication: ENDOCARDITIS BACTERIAL
     Route: 042
     Dates: start: 20140403, end: 20140407

REACTIONS (9)
  - Acute kidney injury [None]
  - Shock [None]
  - Ventricular tachycardia [None]
  - Hypothermia [None]
  - Haemodialysis [None]
  - Dehydration [None]
  - Sepsis [None]
  - Acute hepatic failure [None]
  - Encephalopathy [None]

NARRATIVE: CASE EVENT DATE: 20140408
